FAERS Safety Report 9124652 (Version 2)
Quarter: 2013Q1

REPORT INFORMATION
  Report Type: Spontaneous
  Country: JP (occurrence: JP)
  Receive Date: 20130227
  Receipt Date: 20130313
  Transmission Date: 20140127
  Serious: Yes (Disabling)
  Sender: FDA-Public Use
  Company Number: JP-B.I. PHARMACEUTICALS,INC./RIDGEFIELD-2013-BI-04613NB

PATIENT
  Age: 74 Year
  Sex: Male
  Weight: 51.3 kg

DRUGS (14)
  1. PRADAXA [Suspect]
     Indication: ATRIAL FIBRILLATION
     Dosage: 220 MG
     Route: 048
     Dates: start: 20120412
  2. LASIX [Suspect]
     Indication: CARDIAC FAILURE CHRONIC
     Dosage: 80 MG
     Route: 048
     Dates: start: 20121228
  3. VOGLIBOSE [Concomitant]
     Indication: DIABETES MELLITUS
     Dosage: 0.9 MG
     Route: 048
     Dates: start: 20111230
  4. AMIODARONE HYDROCHLORIDE [Concomitant]
     Indication: ATRIAL FIBRILLATION
     Dosage: 200 MG
     Route: 048
     Dates: start: 20111222
  5. LIPITOR [Concomitant]
     Indication: HYPERLIPIDAEMIA
     Dosage: 200 MG
     Route: 048
     Dates: start: 20110413
  6. PLAVIX [Concomitant]
     Indication: PROPHYLAXIS
     Dosage: 75 MG
     Route: 048
     Dates: start: 20120214
  7. BAYASPIRIN [Concomitant]
     Indication: PROPHYLAXIS
     Dosage: 100 MG
     Route: 048
     Dates: start: 20110413
  8. ARTIST [Concomitant]
     Indication: CARDIAC FAILURE CHRONIC
     Dosage: 10 MG
     Route: 048
     Dates: start: 20110413
  9. PARIET [Concomitant]
     Indication: GASTRITIS PROPHYLAXIS
     Dosage: 10 MG
     Route: 048
     Dates: start: 20110413
  10. MAGLAX [Concomitant]
     Indication: CONSTIPATION
     Route: 048
     Dates: start: 20120126
  11. ARGAMATE [Concomitant]
     Indication: RENAL FAILURE
     Dosage: 100 G
     Route: 048
     Dates: start: 20130201
  12. NITRODERM [Concomitant]
     Indication: CARDIAC FAILURE CHRONIC
     Dosage: 25 MG
     Route: 062
     Dates: start: 20120311
  13. AMARYL [Concomitant]
     Indication: DIABETES MELLITUS
     Dosage: 3 MG
     Route: 048
     Dates: start: 20130201
  14. NESINA [Concomitant]
     Indication: DIABETES MELLITUS
     Dosage: 12.5 MG
     Route: 048
     Dates: start: 20121229

REACTIONS (2)
  - Cerebral infarction [Not Recovered/Not Resolved]
  - Drug effect incomplete [Unknown]
